FAERS Safety Report 18338504 (Version 1)
Quarter: 2020Q4

REPORT INFORMATION
  Report Type: Spontaneous
  Country: FR (occurrence: FR)
  Receive Date: 20201002
  Receipt Date: 20201002
  Transmission Date: 20210113
  Serious: Yes (Life-Threatening)
  Sender: FDA-Public Use
  Company Number: FR-MYLANLABS-2020M1082686

PATIENT
  Age: 17 Year
  Sex: Male
  Weight: 64 kg

DRUGS (12)
  1. CISATRACURIUM MYLAN [Suspect]
     Active Substance: CISATRACURIUM
     Indication: INDUCTION OF ANAESTHESIA
     Dosage: 18 MILLIGRAM, QD
     Route: 042
     Dates: start: 20200814, end: 20200814
  2. TOPALGIC                           /00599202/ [Suspect]
     Active Substance: TRAMADOL HYDROCHLORIDE
     Indication: PAIN
     Dosage: 100 MILLIGRAM, TOTAL
     Route: 042
     Dates: start: 20200814, end: 20200814
  3. REMIFENTANIL MYLAN [Suspect]
     Active Substance: REMIFENTANIL
     Indication: INDUCTION OF ANAESTHESIA
     Dosage: UNK
     Route: 042
     Dates: start: 20200814, end: 20200814
  4. NEFOPAM MYLAN 20 MG/2 ML, SOLUTION INJECTABLE [Suspect]
     Active Substance: NEFOPAM HYDROCHLORIDE
     Indication: PAIN
     Dosage: 20 MILLIGRAM, TOTAL
     Route: 042
     Dates: start: 20200814, end: 20200814
  5. OXYNORM [Suspect]
     Active Substance: OXYCODONE HYDROCHLORIDE
     Indication: PAIN
     Dosage: 6 MILLIGRAM, TOTAL
     Route: 042
     Dates: start: 20200814, end: 20200814
  6. PERFALGAN [Suspect]
     Active Substance: ACETAMINOPHEN
     Indication: PAIN
     Dosage: 1 GRAM, TOTAL
     Route: 042
     Dates: start: 20200814, end: 20200814
  7. ATROPINE SULFATE AGUETTANT [Suspect]
     Active Substance: ATROPINE SULFATE
     Indication: PROPHYLAXIS
     Dosage: 1 MILLIGRAM, TOTAL
     Route: 042
     Dates: start: 20200814, end: 20200814
  8. KETAMINE RENAUDIN [Suspect]
     Active Substance: KETAMINE
     Indication: INDUCTION OF ANAESTHESIA
     Dosage: 30 MILLIGRAM, TOTAL
     Route: 042
     Dates: start: 20200814, end: 20200814
  9. PROSTIGMINE 0,5 MG/1 ML, SOLUTION INJECTABLE [Suspect]
     Active Substance: NEOSTIGMINE METHYLSULFATE
     Indication: NEUROMUSCULAR BLOCKADE REVERSAL
     Dosage: 2.5 MILLIGRAM, TOTAL
     Route: 042
     Dates: start: 20200814, end: 20200814
  10. DEXAMETHASONE MYLAN [Suspect]
     Active Substance: DEXAMETHASONE
     Indication: PROPHYLAXIS
     Dosage: 8 MILLIGRAM, TOTAL
     Route: 042
     Dates: start: 20200814, end: 20200814
  11. C?FAZOLINE MYLAN 2 G, POUDRE POUR SOLUTION INJECTABLE (IM-IV) [Suspect]
     Active Substance: CEFAZOLIN SODIUM
     Indication: PROPHYLAXIS
     Dosage: 2 GRAM, TOTAL
     Route: 042
     Dates: start: 20200814, end: 20200814
  12. PROPOFOL LIPURO [Suspect]
     Active Substance: PROPOFOL
     Indication: INDUCTION OF ANAESTHESIA
     Dosage: 200 MILLIGRAM, TOTAL
     Route: 042
     Dates: start: 20200814, end: 20200814

REACTIONS (2)
  - Seizure [Recovered/Resolved]
  - Coma [Recovered/Resolved]

NARRATIVE: CASE EVENT DATE: 20200814
